FAERS Safety Report 23933303 (Version 2)
Quarter: 2024Q4

REPORT INFORMATION
  Report Type: Spontaneous
  Country: US (occurrence: US)
  Receive Date: 20240603
  Receipt Date: 20241119
  Transmission Date: 20250115
  Serious: Yes (Other)
  Sender: PFIZER
  Company Number: US-PFIZER INC-202400181780

PATIENT
  Age: 72 Year
  Sex: Female

DRUGS (13)
  1. XELJANZ XR [Suspect]
     Active Substance: TOFACITINIB CITRATE
     Dosage: 11 MG, 1X/DAY
     Route: 048
     Dates: start: 2017
  2. XELJANZ XR [Suspect]
     Active Substance: TOFACITINIB CITRATE
     Dosage: 11 MG PER DAY ORALLY
     Route: 048
     Dates: end: 202409
  3. CELEBREX [Concomitant]
     Active Substance: CELECOXIB
     Dosage: UNK
  4. GAMMAGARD [Concomitant]
     Active Substance: HUMAN IMMUNOGLOBULIN G
     Dosage: UNK
  5. TYLENOL ARTHRITIS PAIN [Concomitant]
     Active Substance: ACETAMINOPHEN
     Dosage: UNK
  6. PLAQUENIL [Concomitant]
     Active Substance: HYDROXYCHLOROQUINE SULFATE
     Dosage: UNK
  7. VITAMIN D3 [Concomitant]
     Active Substance: CHOLECALCIFEROL
     Dosage: UNK
  8. CARVEDILOL PHOSPHATE [Concomitant]
     Active Substance: CARVEDILOL PHOSPHATE
     Dosage: UNK
  9. AMLODIPINE BESYLATE [Concomitant]
     Active Substance: AMLODIPINE BESYLATE
     Dosage: UNK
  10. BUDESONIDE [Concomitant]
     Active Substance: BUDESONIDE
     Dosage: UNK (ER)
  11. CARVEDILOL [Concomitant]
     Active Substance: CARVEDILOL
     Dosage: UNK (ER)
  12. GAMMAGARD LIQUID [Concomitant]
     Active Substance: HUMAN IMMUNOGLOBULIN G
     Dosage: UNK
  13. XOPENEX HFA [Concomitant]
     Active Substance: LEVALBUTEROL TARTRATE
     Dosage: UNK

REACTIONS (2)
  - Squamous cell carcinoma of skin [Unknown]
  - Asthma [Not Recovered/Not Resolved]

NARRATIVE: CASE EVENT DATE: 20240516
